FAERS Safety Report 4970321-2 (Version None)
Quarter: 2006Q2

REPORT INFORMATION
  Report Type: 
  Country: None (occurrence: None)
  Receive Date: 20060412
  Receipt Date: 20060215
  Transmission Date: 20061013
  Serious: Yes (Death, Disabling, Other)
  Sender: FDA-Public Use
  Company Number: PHBS2006JP02450

PATIENT
  Age: 71 Year
  Sex: Female
  Weight: 38 kg

DRUGS (3)
  1. GLEEVEC [Suspect]
     Indication: ACUTE LYMPHOCYTIC LEUKAEMIA
     Dosage: 400 MG, QD
     Route: 048
     Dates: start: 20050503, end: 20050621
  2. GLEEVEC [Suspect]
     Dosage: 200 MG, QD
     Route: 048
     Dates: start: 20050819, end: 20050928
  3. GLEEVEC [Suspect]
     Dosage: 400 MG, QD
     Route: 048
     Dates: start: 20050929, end: 20051118

REACTIONS (4)
  - BLOOD GLUCOSE DECREASED [None]
  - BONE MARROW FAILURE [None]
  - HYPOGLYCAEMIA [None]
  - MALIGNANT NEOPLASM PROGRESSION [None]
